FAERS Safety Report 13347228 (Version 1)
Quarter: 2017Q1

REPORT INFORMATION
  Report Type: Spontaneous
  Country: KR (occurrence: KR)
  Receive Date: 20170317
  Receipt Date: 20170317
  Transmission Date: 20170428
  Serious: Yes (Other)
  Sender: FDA-Public Use
  Company Number: KR-009507513-1703KOR007875

PATIENT
  Age: 61 Year
  Sex: Male
  Weight: 57 kg

DRUGS (74)
  1. EMEND (FOSAPREPITANT DIMEGLUMINE) [Suspect]
     Active Substance: FOSAPREPITANT DIMEGLUMINE
     Dosage: 150 MG, ONCE
     Route: 042
     Dates: start: 20161219, end: 20161219
  2. EMEND (FOSAPREPITANT DIMEGLUMINE) [Suspect]
     Active Substance: FOSAPREPITANT DIMEGLUMINE
     Dosage: 150 MG, ONCE
     Route: 042
     Dates: start: 20170306, end: 20170306
  3. UNISTIN [Concomitant]
     Dosage: 90 MG, QD (CYCLE 2)
     Route: 042
     Dates: start: 20161128, end: 20161128
  4. HERCEPTIN [Concomitant]
     Active Substance: TRASTUZUMAB
     Indication: GASTRIC CANCER
     Dosage: 450 MG, QD (CYCLE 1)
     Route: 042
     Dates: start: 20161107, end: 20161107
  5. XELODA [Concomitant]
     Active Substance: CAPECITABINE
     Indication: GASTRIC CANCER
     Dosage: 3 TABLETS, BID (CYCLE 1)
     Route: 048
     Dates: start: 20161107, end: 20161120
  6. XELODA [Concomitant]
     Active Substance: CAPECITABINE
     Dosage: 3 TABLETS, BID (CYCLE 4)
     Route: 048
     Dates: start: 20170109, end: 20170122
  7. XELODA [Concomitant]
     Active Substance: CAPECITABINE
     Dosage: 3 TABLETS, BID (CYCLE 6)
     Route: 048
     Dates: start: 20170306
  8. DEXAMETHASONE. [Concomitant]
     Active Substance: DEXAMETHASONE
     Dosage: 8 TABLETS, BID
     Route: 048
     Dates: start: 20170109, end: 20170111
  9. DEXAMETHASONE. [Concomitant]
     Active Substance: DEXAMETHASONE
     Indication: GASTRIC CANCER
     Dosage: 4 AM, QD (STRENGTH: 5 MG/ML)
     Route: 042
     Dates: start: 20161107, end: 20161107
  10. DEXAMETHASONE. [Concomitant]
     Active Substance: DEXAMETHASONE
     Dosage: 4 AM, QD (STRENGTH: 5 MG/ML)
     Route: 042
     Dates: start: 20170109, end: 20170109
  11. MACPERAN [Concomitant]
     Active Substance: METOCLOPRAMIDE HYDROCHLORIDE
     Dosage: UNK, BID
     Route: 048
     Dates: start: 20161128, end: 20161202
  12. KANITRON [Concomitant]
     Dosage: 1 DF, QD (STRENGTH: 3 MG/3 ML)
     Route: 042
     Dates: start: 20170206, end: 20170206
  13. PENIRAMIN [Concomitant]
     Dosage: 1 DF, QD
     Route: 042
     Dates: start: 20161128, end: 20161128
  14. TYLENOL [Concomitant]
     Active Substance: ACETAMINOPHEN
     Dosage: 2 DF, QD
     Route: 048
     Dates: start: 20170206, end: 20170206
  15. EMEND (FOSAPREPITANT DIMEGLUMINE) [Suspect]
     Active Substance: FOSAPREPITANT DIMEGLUMINE
     Indication: PROPHYLAXIS OF NAUSEA AND VOMITING
     Dosage: 150 MG, ONCE
     Route: 042
     Dates: start: 20161107, end: 20161107
  16. EMEND (FOSAPREPITANT DIMEGLUMINE) [Suspect]
     Active Substance: FOSAPREPITANT DIMEGLUMINE
     Dosage: 150 MG, ONCE
     Route: 042
     Dates: start: 20170206, end: 20170206
  17. UNISTIN [Concomitant]
     Dosage: 90 MG, QD (CYCLE 3)
     Route: 042
     Dates: start: 20161219, end: 20161219
  18. UNISTIN [Concomitant]
     Dosage: 90 MG, QD (CYCLE 4)
     Route: 042
     Dates: start: 20170109, end: 20170109
  19. DEXAMETHASONE. [Concomitant]
     Active Substance: DEXAMETHASONE
     Dosage: 8 TABLETS, BID
     Route: 048
     Dates: start: 20161219, end: 20161221
  20. DEXAMETHASONE. [Concomitant]
     Active Substance: DEXAMETHASONE
     Dosage: 4 AM, QD (STRENGTH: 5 MG/ML)
     Route: 042
     Dates: start: 20161128, end: 20161128
  21. DEXAMETHASONE. [Concomitant]
     Active Substance: DEXAMETHASONE
     Dosage: 4 AM, QD (STRENGTH: 5 MG/ML)
     Route: 042
     Dates: start: 20161219, end: 20161219
  22. MACPERAN [Concomitant]
     Active Substance: METOCLOPRAMIDE HYDROCHLORIDE
     Indication: PROPHYLAXIS OF NAUSEA AND VOMITING
     Dosage: 1 TABLET, QID
     Dates: start: 20161107, end: 20161107
  23. MACPERAN [Concomitant]
     Active Substance: METOCLOPRAMIDE HYDROCHLORIDE
     Dosage: 1 TABLET, QID
     Route: 048
     Dates: start: 20170306, end: 20170310
  24. POTASSIUM CHLORIDE. [Concomitant]
     Active Substance: POTASSIUM CHLORIDE
     Dosage: 0.5 DF, QD
     Route: 042
     Dates: start: 20170206, end: 20170206
  25. PENIRAMIN [Concomitant]
     Indication: PREMEDICATION
     Dosage: 1 DF, QD
     Route: 042
     Dates: start: 20161107, end: 20161107
  26. LASIX [Concomitant]
     Active Substance: FUROSEMIDE
     Dosage: 1 DF, QD (STRENGTH: 20 MG/2 ML)
     Route: 042
     Dates: start: 20161128, end: 20161128
  27. RABET [Concomitant]
     Indication: GASTRIC ULCER PERFORATION
     Dosage: 1 DF, QD
     Route: 048
     Dates: start: 20161021, end: 20170302
  28. MUCOSTA [Concomitant]
     Active Substance: REBAMIPIDE
     Indication: GASTRIC ULCER PERFORATION
     Dosage: 1 DF, TID
     Route: 048
     Dates: start: 20161021, end: 20161027
  29. MUCOSTA [Concomitant]
     Active Substance: REBAMIPIDE
     Dosage: 1 DF, BID
     Route: 048
     Dates: start: 20161028, end: 20161103
  30. HERCEPTIN [Concomitant]
     Active Substance: TRASTUZUMAB
     Dosage: 340 MG, QD (CYCLE 3)
     Route: 042
     Dates: start: 20161219, end: 20161219
  31. HERCEPTIN [Concomitant]
     Active Substance: TRASTUZUMAB
     Dosage: 340 MG, QD (CYCLE 4)
     Route: 042
     Dates: start: 20170109, end: 20170109
  32. HERCEPTIN [Concomitant]
     Active Substance: TRASTUZUMAB
     Dosage: 340 MG, QD (CYCLE 5)
     Route: 042
     Dates: start: 20170206, end: 20170206
  33. DEXAMETHASONE. [Concomitant]
     Active Substance: DEXAMETHASONE
     Dosage: 8 MG, QD (STRENGTH: 5 MG/ML)
     Route: 042
     Dates: start: 20161108, end: 20161108
  34. PENIRAMIN [Concomitant]
     Dosage: 1 DF, QD
     Route: 042
     Dates: start: 20161219, end: 20161219
  35. PENIRAMIN [Concomitant]
     Dosage: 1 DF, QD
     Route: 042
     Dates: start: 20170206, end: 20170206
  36. LASIX [Concomitant]
     Active Substance: FUROSEMIDE
     Dosage: 1 DF, QD (STRENGTH: 20 MG/2 ML)
     Route: 042
     Dates: start: 20170306, end: 20170306
  37. EMEND (FOSAPREPITANT DIMEGLUMINE) [Suspect]
     Active Substance: FOSAPREPITANT DIMEGLUMINE
     Dosage: 150 MG, ONCE
     Route: 042
     Dates: start: 20161128, end: 20161128
  38. UNISTIN [Concomitant]
     Dosage: 90 MG, QD (CYCLE 6)
     Route: 042
     Dates: start: 20170306, end: 20170306
  39. XELODA [Concomitant]
     Active Substance: CAPECITABINE
     Dosage: 3 TABLETS, BID (CYCLE 3)
     Route: 048
     Dates: start: 20161219, end: 20170101
  40. DEXAMETHASONE. [Concomitant]
     Active Substance: DEXAMETHASONE
     Dosage: 8 TABLETS, BID
     Route: 048
     Dates: start: 20161128, end: 20161130
  41. DEXAMETHASONE. [Concomitant]
     Active Substance: DEXAMETHASONE
     Dosage: 4 AM, QD (STRENGTH: 5 MG/ML)
     Route: 042
     Dates: start: 20170306, end: 20170306
  42. MACPERAN [Concomitant]
     Active Substance: METOCLOPRAMIDE HYDROCHLORIDE
     Dosage: 1 TABLET, BID
     Route: 048
     Dates: start: 20170109, end: 20170113
  43. POTASSIUM CHLORIDE. [Concomitant]
     Active Substance: POTASSIUM CHLORIDE
     Dosage: 0.5 DF, QD
     Route: 042
     Dates: start: 20161219, end: 20161219
  44. POTASSIUM CHLORIDE. [Concomitant]
     Active Substance: POTASSIUM CHLORIDE
     Dosage: 0.5 DF, QD
     Route: 042
     Dates: start: 20170109, end: 20170109
  45. LASIX [Concomitant]
     Active Substance: FUROSEMIDE
     Dosage: 1 DF, QD (STRENGTH: 20 MG/2 ML)
     Route: 042
     Dates: start: 20170206, end: 20170206
  46. HERCEPTIN [Concomitant]
     Active Substance: TRASTUZUMAB
     Dosage: 310 MG, QD (CYCLE 6)
     Route: 042
     Dates: start: 20170306, end: 20170306
  47. XELODA [Concomitant]
     Active Substance: CAPECITABINE
     Dosage: 3 TABLETS, BID (CYCLE 5)
     Route: 048
     Dates: start: 20170206, end: 20170219
  48. DEXAMETHASONE. [Concomitant]
     Active Substance: DEXAMETHASONE
     Dosage: 4 AM, QD (STRENGTH: 5 MG/ML)
     Route: 042
     Dates: start: 20170206, end: 20170206
  49. POTASSIUM CHLORIDE. [Concomitant]
     Active Substance: POTASSIUM CHLORIDE
     Indication: PROPHYLAXIS
     Dosage: 0.5 DF, QD
     Route: 042
     Dates: start: 20161128, end: 20161128
  50. PENIRAMIN [Concomitant]
     Dosage: 1 DF, QD
     Route: 042
     Dates: start: 20170306, end: 20170306
  51. TYLENOL [Concomitant]
     Active Substance: ACETAMINOPHEN
     Dosage: 2 DF, QD
     Route: 048
     Dates: start: 20161128, end: 20161128
  52. EMEND (FOSAPREPITANT DIMEGLUMINE) [Suspect]
     Active Substance: FOSAPREPITANT DIMEGLUMINE
     Dosage: 150 MG, ONCE
     Route: 042
     Dates: start: 20170109, end: 20170109
  53. UNISTIN [Concomitant]
     Indication: GASTRIC CANCER
     Dosage: 90 MG, QD (CYCLE 1)
     Route: 042
     Dates: start: 20161107, end: 20161107
  54. HERCEPTIN [Concomitant]
     Active Substance: TRASTUZUMAB
     Dosage: 340 MG, QD (CYCLE 2)
     Route: 042
     Dates: start: 20161128, end: 20161128
  55. XELODA [Concomitant]
     Active Substance: CAPECITABINE
     Dosage: 3 TABLETS, BID (CYCLE 2)
     Route: 048
     Dates: start: 20161128, end: 20161211
  56. MACPERAN [Concomitant]
     Active Substance: METOCLOPRAMIDE HYDROCHLORIDE
     Dosage: 1 TABLET, BID
     Route: 048
     Dates: start: 20161219, end: 20161223
  57. MACPERAN [Concomitant]
     Active Substance: METOCLOPRAMIDE HYDROCHLORIDE
     Dosage: 1 TABLET, BID
     Route: 048
     Dates: start: 20170206, end: 20170210
  58. KANITRON [Concomitant]
     Dosage: 1 DF, QD (STRENGTH: 3 MG/3 ML)
     Route: 042
     Dates: start: 20161219, end: 20161219
  59. TYLENOL [Concomitant]
     Active Substance: ACETAMINOPHEN
     Indication: PREMEDICATION
     Dosage: 2 DF, QD
     Route: 048
     Dates: start: 20161107, end: 20161107
  60. LASIX [Concomitant]
     Active Substance: FUROSEMIDE
     Indication: FLUID IMBALANCE
     Dosage: 1 DF, QD (STRENGTH: 20 MG/2 ML)
     Route: 042
     Dates: start: 20161107, end: 20161107
  61. DEXAMETHASONE. [Concomitant]
     Active Substance: DEXAMETHASONE
     Indication: GASTRIC CANCER
     Dosage: 16 TABLETS, QD
     Route: 048
     Dates: start: 20161109, end: 20161110
  62. MACPERAN [Concomitant]
     Active Substance: METOCLOPRAMIDE HYDROCHLORIDE
     Dosage: 1 TABLET, TID
     Route: 048
     Dates: start: 20161108, end: 20161113
  63. KANITRON [Concomitant]
     Dosage: 1 DF, QD (STRENGTH: 3 MG/3 ML)
     Route: 042
     Dates: start: 20170109, end: 20170109
  64. PENIRAMIN [Concomitant]
     Dosage: 1 DF, QD
     Route: 042
     Dates: start: 20170109, end: 20170109
  65. TYLENOL [Concomitant]
     Active Substance: ACETAMINOPHEN
     Dosage: 2 DF, QD
     Route: 048
     Dates: start: 20161219, end: 20161219
  66. TYLENOL [Concomitant]
     Active Substance: ACETAMINOPHEN
     Dosage: 2 DF, QD
     Route: 048
     Dates: start: 20170109, end: 20170109
  67. LASIX [Concomitant]
     Active Substance: FUROSEMIDE
     Dosage: 1 DF, QD (STRENGTH: 20 MG/2 ML)
     Route: 042
     Dates: start: 20161219, end: 20161219
  68. LASIX [Concomitant]
     Active Substance: FUROSEMIDE
     Dosage: 1 DF, QD (STRENGTH: 20 MG/2 ML)
     Route: 042
     Dates: start: 20170109, end: 20170109
  69. UNISTIN [Concomitant]
     Dosage: 90 MG, QD (CYCLE 5)
     Route: 042
     Dates: start: 20170206, end: 20170206
  70. KANITRON [Concomitant]
     Indication: PROPHYLAXIS OF NAUSEA AND VOMITING
     Dosage: 1 DF, QD (STRENGTH: 3 MG/3 ML)
     Route: 042
     Dates: start: 20161128, end: 20161128
  71. POTASSIUM CHLORIDE. [Concomitant]
     Active Substance: POTASSIUM CHLORIDE
     Dosage: 0.5 DF, QD
     Route: 042
     Dates: start: 20170306, end: 20170306
  72. TYLENOL [Concomitant]
     Active Substance: ACETAMINOPHEN
     Dosage: 2 DF, QD
     Route: 048
     Dates: start: 20170306, end: 20170306
  73. MUCOSTA [Concomitant]
     Active Substance: REBAMIPIDE
     Dosage: 1 DF, TID
     Route: 048
     Dates: start: 20161104, end: 20161115
  74. MUCOSTA [Concomitant]
     Active Substance: REBAMIPIDE
     Dosage: 1 DF, BID
     Route: 048
     Dates: start: 20161116, end: 20170302

REACTIONS (2)
  - Decreased appetite [Not Recovered/Not Resolved]
  - Hyperbilirubinaemia [Recovered/Resolved]

NARRATIVE: CASE EVENT DATE: 20170109
